FAERS Safety Report 6813345-2 (Version None)
Quarter: 2010Q2

REPORT INFORMATION
  Report Type: 
  Country: None (occurrence: None)
  Receive Date: 20100628
  Receipt Date: 20100622
  Transmission Date: 20101027
  Serious: Yes (Other)
  Sender: FDA-Public Use
  Company Number: 2010SP035162

PATIENT
  Sex: Female

DRUGS (2)
  1. MIRALAX [Suspect]
     Indication: ABDOMINAL DISTENSION
     Dosage: 17 GM; QD; PO
     Route: 048
     Dates: end: 20100621
  2. STOOL SOFTNER [Concomitant]

REACTIONS (6)
  - ABDOMINAL PAIN UPPER [None]
  - DIARRHOEA [None]
  - FAECAL INCONTINENCE [None]
  - FAECES DISCOLOURED [None]
  - FLATULENCE [None]
  - INCORRECT DRUG ADMINISTRATION DURATION [None]
